FAERS Safety Report 21792245 (Version 1)
Quarter: 2022Q4

REPORT INFORMATION
  Report Type: Spontaneous
  Country: None (occurrence: US)
  Receive Date: 20221229
  Receipt Date: 20221229
  Transmission Date: 20230113
  Serious: No
  Sender: FDA-Public Use
  Company Number: US-Armstrong Pharmaceuticals, Inc.-2136248

PATIENT
  Age: 68 Year
  Sex: Male
  Weight: 72.727 kg

DRUGS (5)
  1. PRIMATENE MIST [Suspect]
     Active Substance: EPINEPHRINE
     Indication: Asthma-chronic obstructive pulmonary disease overlap syndrome
     Route: 055
  2. LEVOFLOXACIN [Concomitant]
     Active Substance: LEVOFLOXACIN
  3. High blood pressure medication (unspecified) [Concomitant]
  4. Calcium tablets [Concomitant]
  5. Heart burn medication (unspecified) [Concomitant]

REACTIONS (4)
  - Cough [Recovered/Resolved]
  - Headache [Unknown]
  - Feeling abnormal [Recovered/Resolved]
  - Wheezing [Unknown]

NARRATIVE: CASE EVENT DATE: 20220926
